FAERS Safety Report 9294498 (Version 1)
Quarter: 2013Q2

REPORT INFORMATION
  Report Type: Spontaneous
  Country: US (occurrence: US)
  Receive Date: 20130517
  Receipt Date: 20130517
  Transmission Date: 20140414
  Serious: No
  Sender: FDA-Public Use
  Company Number: US-BIOGENIDEC-2013BI044399

PATIENT
  Sex: Female

DRUGS (4)
  1. TYSABRI [Suspect]
     Indication: PRODUCT USED FOR UNKNOWN INDICATION
  2. REBIF [Concomitant]
  3. COPAXONE [Concomitant]
  4. GILENYA [Concomitant]

REACTIONS (5)
  - Adverse reaction [Unknown]
  - Central nervous system lesion [Unknown]
  - Bladder disorder [Unknown]
  - Optic neuritis [Unknown]
  - Drug specific antibody present [Unknown]
